FAERS Safety Report 13231980 (Version 1)
Quarter: 2017Q1

REPORT INFORMATION
  Report Type: Spontaneous
  Country: GB (occurrence: GB)
  Receive Date: 20170214
  Receipt Date: 20170214
  Transmission Date: 20170428
  Serious: Yes (Other)
  Sender: FDA-Public Use
  Company Number: GB-SA-2017SA021190

PATIENT
  Age: 65 Year
  Sex: Male

DRUGS (4)
  1. ENOXAPARIN SODIUM. [Suspect]
     Active Substance: ENOXAPARIN SODIUM
     Indication: PULMONARY EMBOLISM
     Route: 058
     Dates: start: 20170122, end: 20170126
  2. ATENOLOL. [Concomitant]
     Active Substance: ATENOLOL
     Route: 065
  3. LANSOPRAZOLE. [Concomitant]
     Active Substance: LANSOPRAZOLE
     Route: 065
  4. LOSARTAN. [Concomitant]
     Active Substance: LOSARTAN
     Indication: PULMONARY EMBOLISM
     Route: 065

REACTIONS (1)
  - Transaminases increased [Unknown]

NARRATIVE: CASE EVENT DATE: 20170126
